FAERS Safety Report 7494645-2 (Version None)
Quarter: 2011Q2

REPORT INFORMATION
  Report Type: 
  Country: None (occurrence: None)
  Receive Date: 20110520
  Receipt Date: 20110516
  Transmission Date: 20111010
  Serious: No
  Sender: FDA-Public Use
  Company Number: US-PFIZER INC-2011104176

PATIENT
  Sex: Male
  Weight: 61.224 kg

DRUGS (4)
  1. GLIPIZIDE [Concomitant]
     Indication: DIABETES MELLITUS
     Dosage: UNK
  2. TOVIAZ [Suspect]
     Dosage: UNK
  3. CLONAZEPAM [Concomitant]
     Dosage: UNK
  4. TOVIAZ [Suspect]
     Indication: BLADDER DISORDER
     Dosage: UNK, DAILY IN THE MORNING
     Route: 048
     Dates: start: 20110501

REACTIONS (1)
  - CONSTIPATION [None]
